FAERS Safety Report 4705851-1 (Version None)
Quarter: 2005Q2

REPORT INFORMATION
  Report Type: 
  Country: None (occurrence: None)
  Receive Date: 20050629
  Receipt Date: 20050427
  Transmission Date: 20051028
  Serious: No
  Sender: FDA-Public Use
  Company Number: 05P-163-0294606-00

PATIENT
  Age: 77 Year
  Sex: Female
  Weight: 58.9676 kg

DRUGS (7)
  1. HUMIRA [Suspect]
     Indication: RHEUMATOID ARTHRITIS
     Dosage: 40 MG, 1 IN 2 WK, SUBCUTANEOUS
     Route: 058
     Dates: start: 20050301
  2. PREDNISONE TAB [Concomitant]
  3. ULTRACET [Concomitant]
  4. CYANOCOBALAMIN [Concomitant]
  5. TOCOPHEROL CONCENTRATE CAP [Concomitant]
  6. GERITOL [Concomitant]
  7. ERYTHROMYCIN [Concomitant]

REACTIONS (7)
  - DRUG INEFFECTIVE [None]
  - INJECTION SITE ERYTHEMA [None]
  - INJECTION SITE IRRITATION [None]
  - INJECTION SITE RASH [None]
  - MALIGNANT MELANOMA [None]
  - PAIN [None]
  - SKIN INJURY [None]
